FAERS Safety Report 10024037 (Version 1)
Quarter: 2014Q1

REPORT INFORMATION
  Report Type: Spontaneous
  Country: US (occurrence: US)
  Receive Date: 20140320
  Receipt Date: 20140320
  Transmission Date: 20141002
  Serious: No
  Sender: FDA-Public Use
  Company Number: US-MYLANLABS-2014S1002663

PATIENT
  Age: 73 Year
  Sex: Male
  Weight: 102.06 kg

DRUGS (1)
  1. ATORVASTATIN CALCIUM TABLETS [Suspect]
     Indication: BLOOD CHOLESTEROL

REACTIONS (1)
  - Hypersensitivity [Not Recovered/Not Resolved]
